FAERS Safety Report 8922080 (Version 2)
Quarter: 2013Q1

REPORT INFORMATION
  Report Type: Spontaneous
  Country: US (occurrence: US)
  Receive Date: 20121126
  Receipt Date: 20130206
  Transmission Date: 20140127
  Serious: Yes (Other)
  Sender: FDA-Public Use
  Company Number: US-BAYER-2012-120337

PATIENT
  Age: 32 Year
  Sex: Female
  Weight: 49.89 kg

DRUGS (4)
  1. BETASERON [Suspect]
     Dosage: 0.25 MG, QOD
     Route: 058
     Dates: start: 200606, end: 200706
  2. LAMICTAL [Concomitant]
     Dosage: 100 MG, UNK
  3. MULTIVITAMIN [Concomitant]
  4. FOLIC ACID [Concomitant]

REACTIONS (4)
  - Infection [Unknown]
  - Rash erythematous [Recovered/Resolved]
  - Drug ineffective [Unknown]
  - Injection site reaction [Recovered/Resolved]
